APPROVED DRUG PRODUCT: REZIRA
Active Ingredient: HYDROCODONE BITARTRATE; PSEUDOEPHEDRINE HYDROCHLORIDE
Strength: 5MG/5ML;60MG/5ML **Federal Register determination that product was not discontinued or withdrawn for safety or effectiveness reasons**
Dosage Form/Route: SOLUTION;ORAL
Application: N022442 | Product #001
Applicant: PERSION PHARMACEUTICALS LLC
Approved: Jun 8, 2011 | RLD: Yes | RS: No | Type: DISCN